FAERS Safety Report 6166673-0 (Version None)
Quarter: 2009Q2

REPORT INFORMATION
  Report Type: 
  Country: None (occurrence: None)
  Receive Date: 20090423
  Receipt Date: 20090423
  Transmission Date: 20091009
  Serious: Yes (Other)
  Sender: FDA-Public Use
  Company Number: None

PATIENT
  Sex: Female
  Weight: 99.7913 kg

DRUGS (1)
  1. CYMBALTA [Suspect]

REACTIONS (3)
  - NERVOUS SYSTEM DISORDER [None]
  - SUICIDAL IDEATION [None]
  - TINNITUS [None]
